FAERS Safety Report 6286691-1 (Version None)
Quarter: 2009Q3

REPORT INFORMATION
  Report Type: 
  Country: None (occurrence: None)
  Receive Date: 20090727
  Receipt Date: 20090727
  Transmission Date: 20100115
  Serious: Yes (Disabling)
  Sender: FDA-Public Use
  Company Number: None

PATIENT
  Sex: Male
  Weight: 77.1115 kg

DRUGS (1)
  1. ZICAM ^NO DRIP LIQUID NASAL GEL^ [Suspect]
     Indication: FEELING ABNORMAL
     Dosage: 2 SQUIRTS/NOSTRIL 1
     Dates: start: 20081023

REACTIONS (2)
  - AGEUSIA [None]
  - ANOSMIA [None]
